FAERS Safety Report 4643601-8 (Version None)
Quarter: 2005Q2

REPORT INFORMATION
  Report Type: 
  Country: None (occurrence: None)
  Receive Date: 20050425
  Receipt Date: 20040123
  Transmission Date: 20051028
  Serious: Yes (Congenital Anomaly)
  Sender: FDA-Public Use
  Company Number: DK-NOVOPROD-235052

PATIENT
  Sex: Male
  Weight: 4 kg

DRUGS (3)
  1. ACTRAPID PENFILL HM(GE) 3.0 ML [Suspect]
     Indication: DIABETES MELLITUS INSULIN-DEPENDENT
     Dosage: 66 IU, QD
     Route: 015
     Dates: start: 20030701, end: 20040226
  2. INSULATARD PENFILL [Concomitant]
     Indication: DIABETES MELLITUS INSULIN-DEPENDENT
     Dosage: 38 IU, QD
     Route: 015
     Dates: start: 20030701
  3. GRAVITAMON [Concomitant]
     Dosage: 1 TAB, QD
     Route: 015
     Dates: start: 20030301

REACTIONS (6)
  - CONGENITAL ANOMALY [None]
  - CONGENITAL HYDRONEPHROSIS [None]
  - DRUG EXPOSURE DURING PREGNANCY [None]
  - PYELECTASIA [None]
  - RENAL DYSPLASIA [None]
  - RENAL IMPAIRMENT [None]
